FAERS Safety Report 7902807-2 (Version None)
Quarter: 2011Q4

REPORT INFORMATION
  Report Type: 
  Country: None (occurrence: None)
  Receive Date: 20111109
  Receipt Date: 20111031
  Transmission Date: 20120403
  Serious: No
  Sender: FDA-Public Use
  Company Number: US-BIOGENIDEC-2011BI041465

PATIENT
  Sex: Female

DRUGS (2)
  1. AVONEX [Suspect]
     Indication: MULTIPLE SCLEROSIS
     Route: 030
     Dates: start: 20111015, end: 20111015
  2. AVONEX [Suspect]
     Route: 030
     Dates: end: 20090101

REACTIONS (2)
  - TREMOR [None]
  - MOBILITY DECREASED [None]
